FAERS Safety Report 5829900-2 (Version None)
Quarter: 2008Q3

REPORT INFORMATION
  Report Type: 
  Country: None (occurrence: None)
  Receive Date: 20080801
  Receipt Date: 20080728
  Transmission Date: 20090109
  Serious: Yes (Death)
  Sender: FDA-Public Use
  Company Number: IT-AVENTIS-200813773EU

PATIENT
  Age: 67 Year
  Sex: Female

DRUGS (1)
  1. CLEXANE [Suspect]
     Indication: ANTICOAGULANT THERAPY
     Dosage: DOSE: UNK

REACTIONS (1)
  - DEATH [None]
